FAERS Safety Report 7348427-2 (Version None)
Quarter: 2011Q1

REPORT INFORMATION
  Report Type: 
  Country: None (occurrence: None)
  Receive Date: 20110311
  Receipt Date: 20110228
  Transmission Date: 20110831
  Serious: Yes (Other)
  Sender: FDA-Public Use
  Company Number: PHHY2011US17512

PATIENT

DRUGS (1)
  1. MYFORTIC [Suspect]
     Dosage: 720 MG, DAILY
     Dates: start: 20080526

REACTIONS (1)
  - AMNESIA [None]
